FAERS Safety Report 25552279 (Version 1)
Quarter: 2025Q3

REPORT INFORMATION
  Report Type: Spontaneous
  Country: BR (occurrence: BR)
  Receive Date: 20250715
  Receipt Date: 20250715
  Transmission Date: 20251020
  Serious: Yes (Other)
  Sender: ABBVIE
  Company Number: BR-LUNDBECK-DKLU4016719

PATIENT
  Age: 72 Year

DRUGS (8)
  1. ESCITALOPRAM [Suspect]
     Active Substance: ESCITALOPRAM OXALATE
     Indication: Anxiety
     Dosage: 10 MILLIGRAM
     Route: 065
  2. LEVODOPA [Concomitant]
     Active Substance: LEVODOPA
     Indication: Product used for unknown indication
     Route: 065
  3. KETAMINE [Concomitant]
     Active Substance: KETAMINE
     Indication: Product used for unknown indication
     Route: 065
  4. REXULTI [Suspect]
     Active Substance: BREXPIPRAZOLE
     Indication: Product used for unknown indication
     Dosage: 2 MILLIGRAM
     Route: 048
  5. REXULTI [Suspect]
     Active Substance: BREXPIPRAZOLE
     Indication: Product used for unknown indication
     Dosage: 3 MILLIGRAM
     Route: 048
  6. DONEPEZIL [Concomitant]
     Active Substance: DONEPEZIL
     Indication: Product used for unknown indication
     Route: 065
  7. DONEPEZIL [Concomitant]
     Active Substance: DONEPEZIL
     Indication: Product used for unknown indication
     Route: 065
  8. RIVASTIGMINE [Concomitant]
     Active Substance: RIVASTIGMINE
     Indication: Product used for unknown indication
     Route: 065

REACTIONS (23)
  - Depressed level of consciousness [Unknown]
  - Pneumonia aspiration [Unknown]
  - Nocturia [Unknown]
  - Neuroleptic malignant syndrome [Not Recovered/Not Resolved]
  - Musculoskeletal stiffness [Unknown]
  - Irritability [Unknown]
  - Muscle rigidity [Unknown]
  - Dementia with Lewy bodies [Unknown]
  - Aggression [Unknown]
  - Drug ineffective [Unknown]
  - Benign prostatic hyperplasia [Unknown]
  - Micturition urgency [Unknown]
  - Persecutory delusion [Unknown]
  - Somnolence [Unknown]
  - Psychotic symptom [Unknown]
  - Gait disturbance [Unknown]
  - Parkinsonism [Unknown]
  - Memory impairment [Unknown]
  - Psychomotor skills impaired [Unknown]
  - Hypersomnia [Unknown]
  - Apraxia [Unknown]
  - Behaviour disorder [Unknown]
  - Hallucination, visual [Unknown]
